FAERS Safety Report 23749896 (Version 1)
Quarter: 2024Q2

REPORT INFORMATION
  Report Type: Spontaneous
  Country: US (occurrence: US)
  Receive Date: 20240417
  Receipt Date: 20240417
  Transmission Date: 20240716
  Serious: Yes (Death)
  Sender: FDA-Public Use
  Company Number: US-SKF-000116

PATIENT
  Age: 23 Year
  Sex: Male

DRUGS (7)
  1. PREGABALIN [Suspect]
     Active Substance: PREGABALIN
     Indication: Product used for unknown indication
     Route: 065
  2. 8-CHLORO-6-(2-CHLOROPHENYL)-N,N-DIMETHYL-4H-[1,2,4]TRIAZOLO[1,5-A][1,4 [Suspect]
     Active Substance: 8-CHLORO-6-(2-CHLOROPHENYL)-N,N-DIMETHYL-4H-[1,2,4]TRIAZOLO[1,5-A][1,4]BENZODIAZEPINE-2-CARBOXAMIDE
     Indication: Product used for unknown indication
     Route: 065
  3. 8-CHLORO-6-(2-CHLOROPHENYL)-N,N-DIMETHYL-4H-[1,2,4]TRIAZOLO[1,5-A][1,4 [Suspect]
     Active Substance: 8-CHLORO-6-(2-CHLOROPHENYL)-N,N-DIMETHYL-4H-[1,2,4]TRIAZOLO[1,5-A][1,4]BENZODIAZEPINE-2-CARBOXAMIDE
     Indication: Product used for unknown indication
     Route: 065
  4. 8-CHLORO-6-(2-CHLOROPHENYL)-N,N-DIMETHYL-4H-[1,2,4]TRIAZOLO[1,5-A][1,4 [Suspect]
     Active Substance: 8-CHLORO-6-(2-CHLOROPHENYL)-N,N-DIMETHYL-4H-[1,2,4]TRIAZOLO[1,5-A][1,4]BENZODIAZEPINE-2-CARBOXAMIDE
     Indication: Product used for unknown indication
     Route: 065
  5. LOPERAMIDE [Suspect]
     Active Substance: LOPERAMIDE
     Indication: Product used for unknown indication
     Route: 065
  6. TRIMEPRAZINE [Suspect]
     Active Substance: TRIMEPRAZINE
     Indication: Product used for unknown indication
     Route: 065
  7. RILMAZAFONE [Suspect]
     Active Substance: RILMAZAFONE
     Indication: Product used for unknown indication
     Route: 065

REACTIONS (3)
  - Toxicity to various agents [Fatal]
  - Product label on wrong product [Fatal]
  - Product dispensing error [Fatal]
